APPROVED DRUG PRODUCT: NEOMYCIN SULFATE
Active Ingredient: NEOMYCIN SULFATE
Strength: 500MG
Dosage Form/Route: TABLET;ORAL
Application: A062173 | Product #001
Applicant: ROXANE LABORATORIES INC
Approved: Approved Prior to Jan 1, 1982 | RLD: No | RS: No | Type: DISCN